FAERS Safety Report 13062932 (Version 2)
Quarter: 2017Q1

REPORT INFORMATION
  Report Type: Spontaneous
  Country: US (occurrence: US)
  Receive Date: 20161227
  Receipt Date: 20170104
  Transmission Date: 20170428
  Serious: No
  Sender: FDA-Public Use
  Company Number: US-009507513-1612USA010552

PATIENT
  Age: 53 Year
  Sex: Male

DRUGS (12)
  1. DIOVAN [Concomitant]
     Active Substance: VALSARTAN
     Dosage: 1 DF, QD
     Route: 048
     Dates: start: 20150625
  2. PRAVASTATIN. [Concomitant]
     Active Substance: PRAVASTATIN
     Dosage: 1 DF, QD
     Route: 048
     Dates: start: 20150625
  3. ALBUTEROL SULFATE (+) AMBROXOL HYDROCHLORIDE [Concomitant]
     Dosage: UNK, PRN
     Dates: start: 20150213
  4. PRINIVIL [Suspect]
     Active Substance: LISINOPRIL
  5. ASPIRIN. [Concomitant]
     Active Substance: ASPIRIN
     Dosage: 1 DF, QD
     Route: 048
     Dates: start: 20150213
  6. GABAPENTIN. [Concomitant]
     Active Substance: GABAPENTIN
     Dosage: 1 DF, TID
     Route: 048
     Dates: start: 20160324
  7. CARVEDILOL. [Concomitant]
     Active Substance: CARVEDILOL
     Dosage: 1 DF, BID
     Route: 048
     Dates: start: 20150213
  8. FERROUS SULFATE. [Concomitant]
     Active Substance: FERROUS SULFATE
     Dosage: 1 DF, QD
     Route: 048
     Dates: start: 20150213
  9. AMBIEN [Concomitant]
     Active Substance: ZOLPIDEM TARTRATE
     Dosage: 1 DF, HS
     Route: 048
     Dates: start: 20150917
  10. LANTUS [Concomitant]
     Active Substance: INSULIN GLARGINE
     Dosage: UNK
     Dates: start: 20150213
  11. FUROSEMIDE. [Concomitant]
     Active Substance: FUROSEMIDE
     Dosage: 1 DF, QD
     Route: 048
     Dates: start: 20150213
  12. METFORMIN [Concomitant]
     Active Substance: METFORMIN HYDROCHLORIDE
     Dosage: UNK
     Dates: start: 20150213

REACTIONS (1)
  - Drug hypersensitivity [Unknown]

NARRATIVE: CASE EVENT DATE: 20160721
